FAERS Safety Report 10435630 (Version 2)
Quarter: 2014Q3

REPORT INFORMATION
  Report Type: Spontaneous
  Country: CA (occurrence: CA)
  Receive Date: 20140908
  Receipt Date: 20140908
  Transmission Date: 20150326
  Serious: Yes (Other)
  Sender: FDA-Public Use
  Company Number: CA-AMGEN-CANSP2013090541

PATIENT
  Age: 70 Year
  Sex: Female
  Weight: 51.3 kg

DRUGS (9)
  1. CALCIUM [Concomitant]
     Active Substance: CALCIUM
     Dosage: UNK
     Route: 065
  2. VITAMIN D                          /00107901/ [Concomitant]
     Active Substance: ERGOCALCIFEROL
     Dosage: UNK
     Route: 065
  3. DEXILANT [Concomitant]
     Active Substance: DEXLANSOPRAZOLE
     Dosage: 30 MG, QD
     Route: 065
  4. ASPIRIN. [Concomitant]
     Active Substance: ASPIRIN
     Dosage: 81 MG, UNK
     Route: 065
  5. IMOVANE [Concomitant]
     Active Substance: ZOPICLONE
     Dosage: 5 MG, QHS
     Route: 065
  6. MVI                                /01825701/ [Concomitant]
     Dosage: UNK
     Route: 065
  7. OMEGA                              /00661201/ [Concomitant]
     Dosage: 900 MG, UNK
     Route: 065
  8. PROLIA [Suspect]
     Active Substance: DENOSUMAB
     Indication: OSTEOPOROSIS POSTMENOPAUSAL
     Dosage: 60 MG, Q6MO
     Route: 058
     Dates: start: 20130724
  9. HYDROCORTISON                      /00028601/ [Concomitant]
     Active Substance: HYDROCORTISONE
     Dosage: UNK UNK, AS NECESSARY
     Route: 065

REACTIONS (12)
  - Dehydration [Unknown]
  - Procedural pain [Unknown]
  - Stomatitis [Recovered/Resolved]
  - Tongue blistering [Unknown]
  - Pain in jaw [Recovered/Resolved]
  - Oral pain [Unknown]
  - Mouth ulceration [Recovered/Resolved]
  - Dry skin [Recovered/Resolved]
  - Dry mouth [Unknown]
  - Foot operation [Unknown]
  - Dry eye [Unknown]
  - Oral mucosal blistering [Unknown]

NARRATIVE: CASE EVENT DATE: 2013
